FAERS Safety Report 25706604 (Version 3)
Quarter: 2025Q3

REPORT INFORMATION
  Report Type: Report from Study
  Country: CA (occurrence: CA)
  Receive Date: 20250820
  Receipt Date: 20250909
  Transmission Date: 20251021
  Serious: Yes (Hospitalization)
  Sender: ABBVIE
  Company Number: CA-ABBVIE-6420044

PATIENT
  Age: 59 Year
  Sex: Male

DRUGS (1)
  1. SKYRIZI [Suspect]
     Active Substance: RISANKIZUMAB-RZAA
     Indication: Crohn^s disease
     Dosage: FORM STRENGTH: 360MG/2.4ML
     Route: 058
     Dates: start: 202506

REACTIONS (7)
  - Lymphadenopathy [Recovered/Resolved]
  - Nervousness [Unknown]
  - Rash [Unknown]
  - Gait inability [Unknown]
  - Drug hypersensitivity [Unknown]
  - Weight decreased [Unknown]
  - Adverse drug reaction [Unknown]

NARRATIVE: CASE EVENT DATE: 20230101
